FAERS Safety Report 26142492 (Version 2)
Quarter: 2025Q4

REPORT INFORMATION
  Report Type: Spontaneous
  Country: US (occurrence: US)
  Receive Date: 20251210
  Receipt Date: 20251212
  Transmission Date: 20260118
  Serious: No
  Sender: SANDOZ
  Company Number: US-SANDOZ-SDZ2025US093038

PATIENT
  Sex: Female

DRUGS (1)
  1. PREDNISOLONE ACETATE [Suspect]
     Active Substance: PREDNISOLONE ACETATE
     Indication: Product used for unknown indication
     Dosage: 1% 10ML LDP
     Route: 047
     Dates: start: 2025

REACTIONS (3)
  - Fatigue [Unknown]
  - Diarrhoea [Unknown]
  - Eye swelling [Unknown]

NARRATIVE: CASE EVENT DATE: 20251206
